FAERS Safety Report 9133794 (Version 1)
Quarter: 2013Q1

REPORT INFORMATION
  Report Type: Spontaneous
  Country: US (occurrence: US)
  Receive Date: 20130303
  Receipt Date: 20130303
  Transmission Date: 20140127
  Serious: No
  Sender: FDA-Public Use
  Company Number: US-ASTRAZENECA-2013SE10999

PATIENT
  Age: 71 Year
  Sex: Male

DRUGS (9)
  1. SYMBICORT [Suspect]
     Indication: ASTHMA
     Dosage: 160 MCG 2 PUFFS, BID
     Route: 055
     Dates: start: 2010, end: 2011
  2. SYMBICORT [Suspect]
     Indication: ASTHMA
     Dosage: UNKNOWN
     Route: 055
  3. PROVENTIL [Concomitant]
     Dosage: AS REQUIRED
  4. NORVASC [Concomitant]
     Indication: HYPERTENSION
     Route: 048
  5. LIPITOR [Concomitant]
     Indication: BLOOD CHOLESTEROL ABNORMAL
     Route: 048
     Dates: start: 2008
  6. FLOMAX [Concomitant]
     Indication: PROSTATOMEGALY
     Route: 048
     Dates: start: 2008
  7. AVODART [Concomitant]
     Indication: PROSTATOMEGALY
     Route: 048
  8. L THYROXINE [Concomitant]
     Indication: THYROID HORMONE REPLACEMENT THERAPY
     Route: 048
     Dates: start: 2010
  9. ACIPHEX [Concomitant]
     Indication: DYSPEPSIA
     Route: 048
     Dates: start: 2006

REACTIONS (3)
  - Borderline glaucoma [Unknown]
  - Change of bowel habit [Recovering/Resolving]
  - Constipation [Recovering/Resolving]
